FAERS Safety Report 19352565 (Version 1)
Quarter: 2021Q2

REPORT INFORMATION
  Report Type: Spontaneous
  Country: IN (occurrence: IN)
  Receive Date: 20210531
  Receipt Date: 20210531
  Transmission Date: 20210717
  Serious: Yes (Other)
  Sender: FDA-Public Use
  Company Number: IN-LUPIN PHARMACEUTICALS INC.-2021-08507

PATIENT
  Sex: Male
  Weight: .95 kg

DRUGS (9)
  1. MISOPROSTOL. [Suspect]
     Active Substance: MISOPROSTOL
     Indication: LABOUR INDUCTION
     Dosage: 50 MICROGRAM
     Route: 064
  2. MAGNESIUM SULFATE. [Suspect]
     Active Substance: MAGNESIUM SULFATE
     Indication: GENERALISED TONIC-CLONIC SEIZURE
     Dosage: 5 GRAM
     Route: 064
  3. FENTANYL. [Suspect]
     Active Substance: FENTANYL
     Indication: ANALGESIC THERAPY
     Dosage: 100 MICROGRAM
     Route: 064
  4. PROPOFOL. [Suspect]
     Active Substance: PROPOFOL
     Indication: SEDATION
     Dosage: 60 MILLIGRAM (TOTAL DOSE)
     Route: 064
  5. BETAMETHASONE. [Suspect]
     Active Substance: BETAMETHASONE
     Indication: MATERNAL THERAPY TO ENHANCE FOETAL LUNG MATURITY
     Dosage: 12 MILLIGRAM (THE ADMINISTRATION WAS REPEATED AFTER 12 HOURS)
     Route: 064
  6. MAGNESIUM SULFATE. [Suspect]
     Active Substance: MAGNESIUM SULFATE
     Dosage: 1 GRAM
     Route: 064
  7. OXYTOCIN. [Suspect]
     Active Substance: OXYTOCIN
     Indication: LABOUR AUGMENTATION
     Dosage: UNK (INFUSION)
     Route: 064
  8. MIDAZOLAM. [Suspect]
     Active Substance: MIDAZOLAM
     Indication: SEDATIVE THERAPY
     Dosage: 1 MILLIGRAM
     Route: 064
  9. LABETALOL [Suspect]
     Active Substance: LABETALOL\LABETALOL HYDROCHLORIDE
     Indication: BLOOD PRESSURE INCREASED
     Dosage: 20 MILLIGRAM
     Route: 064

REACTIONS (5)
  - Foetal exposure during pregnancy [Unknown]
  - Low birth weight baby [Unknown]
  - Sepsis [Unknown]
  - Premature baby [Unknown]
  - Foetal growth restriction [Unknown]
